FAERS Safety Report 24278694 (Version 1)
Quarter: 2024Q3

REPORT INFORMATION
  Report Type: Spontaneous
  Country: DK (occurrence: DK)
  Receive Date: 20240903
  Receipt Date: 20240903
  Transmission Date: 20241016
  Serious: Yes (Death, Other)
  Sender: SANDOZ
  Company Number: None

PATIENT
  Age: 8 Decade
  Sex: Female

DRUGS (2)
  1. ERELZI [Suspect]
     Active Substance: ETANERCEPT-SZZS
     Indication: Rheumatoid arthritis
     Dosage: 50.000MG
     Route: 058
     Dates: start: 20240627, end: 20240716
  2. PIPERACILLIN SODIUM\TAZOBACTAM SODIUM [Concomitant]
     Active Substance: PIPERACILLIN SODIUM\TAZOBACTAM SODIUM
     Indication: Infection
     Dosage: STARTED DURING THE FIRST HOSPITALISATION IN JUL2024
     Route: 065
     Dates: start: 202407

REACTIONS (2)
  - Stevens-Johnson syndrome [Fatal]
  - Lip scab [Unknown]

NARRATIVE: CASE EVENT DATE: 20240701
